FAERS Safety Report 4829310-0 (Version None)
Quarter: 2005Q4

REPORT INFORMATION
  Report Type: 
  Country: None (occurrence: None)
  Receive Date: 20051028
  Receipt Date: 20050919
  Transmission Date: 20060501
  Serious: Yes (Hospitalization)
  Sender: FDA-Public Use
  Company Number: COT_0214_2005

PATIENT
  Age: 55 Year
  Sex: Male
  Weight: 56.2 kg

DRUGS (1)
  1. VENTAVIS [Suspect]
     Indication: PULMONARY HYPERTENSION
     Dosage: 5 MCG QID  IH
     Route: 055
     Dates: start: 20050613

REACTIONS (1)
  - BLOOD POTASSIUM DECREASED [None]
